FAERS Safety Report 17597012 (Version 1)
Quarter: 2020Q1

REPORT INFORMATION
  Report Type: Spontaneous
  Country: US (occurrence: US)
  Receive Date: 20200330
  Receipt Date: 20200330
  Transmission Date: 20200409
  Serious: Yes (Death)
  Sender: FDA-Public Use
  Company Number: US-TEVA-2020-US-1213959

PATIENT

DRUGS (6)
  1. IFOSFAMIDE. [Suspect]
     Active Substance: IFOSFAMIDE
     Indication: EWING^S SARCOMA
     Dosage: RECEIVED THE COMPLETE COURSE OF THE SCHEDULED TREATMENT WITH }90% OF THE TARGETED CUMULATIVE D...
     Route: 065
  2. ETOPOSIDE. [Suspect]
     Active Substance: ETOPOSIDE
     Indication: EWING^S SARCOMA
     Dosage: RECEIVED THE COMPLETE COURSE OF THE SCHEDULED TREATMENT WITH }90% OF THE TARGETED CUMULATIVE D...
     Route: 065
  3. DOXORUBICIN [Suspect]
     Active Substance: DOXORUBICIN
     Indication: EWING^S SARCOMA
     Dosage: RECEIVED THE COMPLETE COURSE OF THE SCHEDULED TREATMENT WITH }90% OF THE TARGETED CUMULATIVE D...
     Route: 065
  4. VINCRISTINE [Suspect]
     Active Substance: VINCRISTINE
     Indication: EWING^S SARCOMA
     Dosage: RECEIVED THE COMPLETE COURSE OF THE SCHEDULED TREATMENT WITH }90% OF THE TARGETED CUMULATIVE D...
     Route: 065
  5. CYCLOPHOSPHAMIDE. [Suspect]
     Active Substance: CYCLOPHOSPHAMIDE
     Indication: EWING^S SARCOMA
     Dosage: RECEIVED THE COMPLETE COURSE OF THE SCHEDULED TREATMENT WITH }90% OF THE TARGETED CUMULATIVE D...
     Route: 065
  6. PEGFILGRASTIM [Concomitant]
     Active Substance: PEGFILGRASTIM
     Indication: EWING^S SARCOMA
     Dosage: ADMINISTERED ONCE PER CYCLE BEGINNING AT LEAST 24 HOURS AFTER COMPLETION OF CHEMOTHERAPY
     Route: 065

REACTIONS (1)
  - Myelodysplastic syndrome [Fatal]
